FAERS Safety Report 21472102 (Version 1)
Quarter: 2022Q4

REPORT INFORMATION
  Report Type: Spontaneous
  Country: US (occurrence: US)
  Receive Date: 20221018
  Receipt Date: 20221018
  Transmission Date: 20230112
  Serious: Yes (Death, Hospitalization, Other)
  Sender: FDA-Public Use
  Company Number: US-PFIZER INC-202201210068

PATIENT
  Age: 52 Year
  Sex: Male

DRUGS (3)
  1. TOFACITINIB [Suspect]
     Active Substance: TOFACITINIB
     Dosage: 10 MG (PER DIEM)
  2. OLOKIZUMAB [Suspect]
     Active Substance: OLOKIZUMAB
     Indication: Respiratory failure
     Dosage: 256 MG
     Route: 042
  3. OLOKIZUMAB [Suspect]
     Active Substance: OLOKIZUMAB
     Indication: Dermatomyositis

REACTIONS (3)
  - Acute respiratory failure [Fatal]
  - Sepsis [Fatal]
  - Product use in unapproved indication [Unknown]
